FAERS Safety Report 7473380-0 (Version None)
Quarter: 2011Q2

REPORT INFORMATION
  Report Type: 
  Country: None (occurrence: None)
  Receive Date: 20110503
  Receipt Date: 20110215
  Transmission Date: 20111010
  Serious: Yes (Hospitalization)
  Sender: FDA-Public Use
  Company Number: 2011-1280

PATIENT
  Age: 56 Year
  Sex: Male
  Weight: 115.6 kg

DRUGS (1)
  1. SOMATULINE DEPOT [Suspect]
     Indication: ACROMEGALY
     Dosage: 90 MG (90 MG, 1 IN 28 D), PARENTERAL
     Route: 051
     Dates: start: 20070724, end: 20100301

REACTIONS (2)
  - BILE DUCT STONE [None]
  - CHOLECYSTITIS ACUTE [None]
